FAERS Safety Report 25612361 (Version 2)
Quarter: 2025Q3

REPORT INFORMATION
  Report Type: Spontaneous
  Country: GB (occurrence: GB)
  Receive Date: 20250728
  Receipt Date: 20250729
  Transmission Date: 20251021
  Serious: Yes (Life-Threatening, Hospitalization, Other)
  Sender: PFIZER
  Company Number: GB-PFIZER INC-PV202500089489

PATIENT
  Age: 8 Decade
  Sex: Male

DRUGS (6)
  1. GEMCITABINE HYDROCHLORIDE [Suspect]
     Active Substance: GEMCITABINE HYDROCHLORIDE
     Indication: Adenocarcinoma pancreas
  2. ABRAXANE [Suspect]
     Active Substance: PACLITAXEL
     Indication: Adenocarcinoma pancreas
  3. TAMSULOSIN [Concomitant]
     Active Substance: TAMSULOSIN
  4. AMITRIPTYLINE [Concomitant]
     Active Substance: AMITRIPTYLINE
  5. FINASTERIDE [Concomitant]
     Active Substance: FINASTERIDE
  6. PREGABALIN [Concomitant]
     Active Substance: PREGABALIN

REACTIONS (1)
  - Orthostatic hypotension [Not Recovered/Not Resolved]
